FAERS Safety Report 9844523 (Version 1)
Quarter: 2014Q1

REPORT INFORMATION
  Report Type: Spontaneous
  Country: JP (occurrence: None)
  Receive Date: 20140123
  Receipt Date: 20140123
  Transmission Date: 20141002
  Serious: Yes (Other)
  Sender: FDA-Public Use
  Company Number: JP-RRD-14-00005

PATIENT
  Age: 13 Year
  Sex: Female

DRUGS (3)
  1. COSMEGEN [Suspect]
     Indication: ALVEOLAR RHABDOMYOSARCOMA
  2. VINCRISTINE(VINCRISTINE)(VINCRISTINE) [Concomitant]
  3. CYCLOPHOSPHAMIDE(CYCLOPHOSPHAMIDE)(CYCLOPHOSPHAMIDE) [Concomitant]
     Indication: ALVEOLAR RHABDOMYOSARCOMA

REACTIONS (4)
  - Dyslalia [None]
  - Post transplant lymphoproliferative disorder [None]
  - Loss of consciousness [None]
  - Headache [None]
